FAERS Safety Report 23046286 (Version 2)
Quarter: 2023Q4

REPORT INFORMATION
  Report Type: Report from Study
  Country: JP (occurrence: JP)
  Receive Date: 20231009
  Receipt Date: 20231120
  Transmission Date: 20240109
  Serious: Yes (Hospitalization)
  Sender: FDA-Public Use
  Company Number: JP-JNJFOC-A-CH2016-139325

PATIENT
  Age: 55 Year
  Sex: Female

DRUGS (8)
  1. TRACLEER [Suspect]
     Active Substance: BOSENTAN
     Indication: Scleroderma associated digital ulcer
     Dosage: 62.5 MG, QD?IN THE MORNING
     Route: 048
     Dates: start: 20150929, end: 20151026
  2. TRACLEER [Suspect]
     Active Substance: BOSENTAN
     Dosage: 62.5 MG, BID?IN THE MORNING AND EVENING
     Route: 048
     Dates: start: 20151027, end: 20151228
  3. TRACLEER [Suspect]
     Active Substance: BOSENTAN
     Dosage: 93.75 MG, BID
     Route: 048
     Dates: start: 20160126, end: 20160315
  4. TRACLEER [Suspect]
     Active Substance: BOSENTAN
     Dosage: TRACLEER 62.5?125 MG IN THE MORNING,62.5MG IN THE EVENING
     Route: 048
     Dates: start: 20151229, end: 20160315
  5. PREDONINE [Concomitant]
     Active Substance: PREDNISOLONE
     Indication: Systemic lupus erythematosus
     Route: 048
  6. OPALMON [Concomitant]
     Active Substance: LIMAPROST
     Indication: Systemic scleroderma
     Route: 048
     Dates: start: 20130531
  7. ENBREL [Concomitant]
     Active Substance: ETANERCEPT
     Indication: Rheumatoid arthritis
     Dosage: 6 BARRELS
     Route: 058
  8. HERBESSER [Concomitant]
     Active Substance: DILTIAZEM HYDROCHLORIDE
     Indication: Systemic scleroderma
     Dosage: 3T
     Route: 048
     Dates: start: 20150623, end: 20150928

REACTIONS (2)
  - Ventilation perfusion mismatch [Recovered/Resolved]
  - Dyspnoea [Recovered/Resolved]

NARRATIVE: CASE EVENT DATE: 20160301
